FAERS Safety Report 17410012 (Version 1)
Quarter: 2020Q1

REPORT INFORMATION
  Report Type: Spontaneous
  Country: NL (occurrence: NL)
  Receive Date: 20200212
  Receipt Date: 20200212
  Transmission Date: 20200409
  Serious: Yes (Death)
  Sender: FDA-Public Use
  Company Number: NL-PFIZER INC-2020057820

PATIENT
  Age: 82 Year
  Sex: Female
  Weight: 87 kg

DRUGS (3)
  1. LINEZOLID. [Suspect]
     Active Substance: LINEZOLID
     Indication: MYCOBACTERIUM CHELONAE INFECTION
     Dosage: 600 MG, 1X/DAY
     Dates: start: 201911
  2. CLARITROMYCINE [Concomitant]
     Active Substance: CLARITHROMYCIN
  3. LAMPRENE [Concomitant]
     Active Substance: CLOFAZIMINE

REACTIONS (14)
  - Fluid retention [Fatal]
  - Off label use [Unknown]
  - Blood pressure decreased [Fatal]
  - Pyrexia [Fatal]
  - Heart rate irregular [Fatal]
  - Chills [Fatal]
  - Product use in unapproved indication [Unknown]
  - Dyspnoea [Fatal]
  - Hyperhidrosis [Fatal]
  - Decreased appetite [Fatal]
  - Rash pruritic [Fatal]
  - Nausea [Fatal]
  - Vomiting [Fatal]
  - Toxicity to various agents [Fatal]

NARRATIVE: CASE EVENT DATE: 20191111
